FAERS Safety Report 21155750 (Version 1)
Quarter: 2022Q3

REPORT INFORMATION
  Report Type: Spontaneous
  Country: NO (occurrence: NO)
  Receive Date: 20220801
  Receipt Date: 20220801
  Transmission Date: 20221027
  Serious: Yes (Death)
  Sender: FDA-Public Use
  Company Number: NO-ANIPHARMA-2022-NO-000005

PATIENT
  Age: 86 Year
  Sex: Female

DRUGS (3)
  1. ATACAND [Suspect]
     Active Substance: CANDESARTAN CILEXETIL
     Indication: Hypertension
     Dosage: 16 MG DAILY
     Route: 065
     Dates: start: 20100709
  2. AMLODIPINE BESYLATE [Suspect]
     Active Substance: AMLODIPINE BESYLATE
     Dosage: 5 MG DAILY
     Route: 065
     Dates: start: 20180619
  3. COMIRNATY [Suspect]
     Active Substance: TOZINAMERAN
     Dosage: J07BX - OTHER VIRAL VACCINE/DOSE NO. IN SERIES: 1 TIME OF VACCINATION:18:20
     Route: 065
     Dates: start: 20210318, end: 20210318

REACTIONS (4)
  - Haematemesis [Fatal]
  - Arteriosclerosis [Fatal]
  - Embolism [Fatal]
  - Arterial injury [Fatal]
